FAERS Safety Report 7935733-3 (Version None)
Quarter: 2011Q4

REPORT INFORMATION
  Report Type: 
  Country: None (occurrence: None)
  Receive Date: 20111123
  Receipt Date: 20111114
  Transmission Date: 20120403
  Serious: Yes (Other)
  Sender: FDA-Public Use
  Company Number: US-JNJFOC-20111105576

PATIENT
  Sex: Female
  Weight: 104.33 kg

DRUGS (2)
  1. REMICADE [Suspect]
     Indication: RHEUMATOID ARTHRITIS
     Route: 042
     Dates: start: 20070101
  2. REMICADE [Suspect]
     Dosage: 2ND INFUSION
     Route: 042
     Dates: end: 20070101

REACTIONS (1)
  - FLUSHING [None]
